FAERS Safety Report 9382425 (Version 1)
Quarter: 2013Q3

REPORT INFORMATION
  Report Type: Spontaneous
  Country: EG (occurrence: EG)
  Receive Date: 20130703
  Receipt Date: 20130703
  Transmission Date: 20140515
  Serious: Yes (Hospitalization)
  Sender: FDA-Public Use
  Company Number: EG-ELI_LILLY_AND_COMPANY-EG201306008816

PATIENT
  Age: 1 Year
  Sex: Female

DRUGS (1)
  1. LISPRO [Suspect]
     Indication: DIABETES MELLITUS
     Dosage: UNK
     Route: 058
     Dates: start: 201302

REACTIONS (2)
  - Dehydration [Recovered/Resolved]
  - Hypoglycaemia [Recovered/Resolved]
